FAERS Safety Report 5937435-1 (Version None)
Quarter: 2008Q4

REPORT INFORMATION
  Report Type: 
  Country: None (occurrence: None)
  Receive Date: 20081031
  Receipt Date: 20081024
  Transmission Date: 20090506
  Serious: Yes (Death, Hospitalization)
  Sender: FDA-Public Use
  Company Number: A0750164A

PATIENT
  Age: 53 Year
  Sex: Female
  Weight: 102.7 kg

DRUGS (2)
  1. AVANDIA [Suspect]
     Indication: DIABETES MELLITUS
     Dosage: 8MG UNKNOWN
     Route: 048
     Dates: start: 19990831, end: 20000615
  2. INSULIN [Concomitant]

REACTIONS (5)
  - CARDIAC ARREST [None]
  - CARDIAC FAILURE CONGESTIVE [None]
  - FATIGUE [None]
  - JAUNDICE [None]
  - MYOCARDIAL INFARCTION [None]
